FAERS Safety Report 5513003-0 (Version None)
Quarter: 2007Q4

REPORT INFORMATION
  Report Type: 
  Country: None (occurrence: None)
  Receive Date: 20071112
  Receipt Date: 20071105
  Transmission Date: 20080405
  Serious: Yes (Other)
  Sender: FDA-Public Use
  Company Number: KR-BRISTOL-MYERS SQUIBB COMPANY-13975321

PATIENT

DRUGS (1)
  1. FUNGIZONE [Suspect]
     Indication: KERATITIS FUNGAL
     Dosage: INTRACAMERAL INJECTION
     Route: 050

REACTIONS (2)
  - CATARACT [None]
  - NEOVASCULARISATION [None]
